FAERS Safety Report 12580974 (Version 15)
Quarter: 2019Q4

REPORT INFORMATION
  Report Type: Spontaneous
  Country: US (occurrence: US)
  Receive Date: 20160721
  Receipt Date: 20191213
  Transmission Date: 20200122
  Serious: No
  Sender: FDA-Public Use
  Company Number: US-ACTELION-A-NJ2016-139246

PATIENT
  Age: 63 Year
  Sex: Female
  Weight: 51.25 kg

DRUGS (4)
  1. OPSUMIT [Suspect]
     Active Substance: MACITENTAN
     Dosage: UNK
     Route: 048
  2. ADCIRCA [Concomitant]
     Active Substance: TADALAFIL
  3. OPSUMIT [Suspect]
     Active Substance: MACITENTAN
     Indication: PULMONARY HYPERTENSION
     Dosage: 10 MG, QD
     Route: 048
     Dates: start: 20141230
  4. LOPERAMIDE [Concomitant]
     Active Substance: LOPERAMIDE
     Indication: DIARRHOEA

REACTIONS (21)
  - Blood glucose decreased [Unknown]
  - Throat irritation [Unknown]
  - Presyncope [Unknown]
  - Osteopenia [Unknown]
  - Asthenia [Recovered/Resolved]
  - Vitamin D deficiency [Unknown]
  - Osteoporosis [Unknown]
  - Diarrhoea [Unknown]
  - Dyspnoea exertional [Unknown]
  - Nasopharyngitis [Unknown]
  - Pain in extremity [Unknown]
  - Fatigue [Recovered/Resolved]
  - Dyspnoea [Recovered/Resolved]
  - Chest discomfort [Recovered/Resolved]
  - Arthritis [Unknown]
  - Hair disorder [Unknown]
  - Dry eye [Unknown]
  - Back pain [Unknown]
  - Cardiac disorder [Unknown]
  - Pain [Unknown]
  - Eye infection [Unknown]

NARRATIVE: CASE EVENT DATE: 201911
